FAERS Safety Report 6213890-7 (Version None)
Quarter: 2009Q2

REPORT INFORMATION
  Report Type: 
  Country: None (occurrence: None)
  Receive Date: 20090604
  Receipt Date: 20090525
  Transmission Date: 20091009
  Serious: Yes (Hospitalization)
  Sender: FDA-Public Use
  Company Number: US-RANBAXY-2009RR-24303

PATIENT
  Age: 15 Year
  Sex: Female

DRUGS (2)
  1. CIPROFLOXACIN [Suspect]
     Dosage: 7.5-10.0 G
     Route: 048
  2. TRAZODONE HCL [Concomitant]
     Dosage: 100 MG, UNK

REACTIONS (2)
  - OVERDOSE [None]
  - RENAL FAILURE ACUTE [None]
